FAERS Safety Report 7367999-5 (Version None)
Quarter: 2011Q1

REPORT INFORMATION
  Report Type: 
  Country: None (occurrence: None)
  Receive Date: 20110322
  Receipt Date: 20110308
  Transmission Date: 20110831
  Serious: Yes (Other)
  Sender: FDA-Public Use
  Company Number: US-BAYER-200934799NA

PATIENT
  Sex: Male
  Weight: 82.54 kg

DRUGS (3)
  1. TRASYLOL [Suspect]
     Indication: MITRAL VALVE REPAIR
  2. TRASYLOL [Suspect]
     Indication: CORONARY ARTERY BYPASS
  3. TRASYLOL [Suspect]
     Indication: CARDIAC ANEURYSM
     Dosage: UNK
     Dates: start: 20050728

REACTIONS (10)
  - INJURY [None]
  - DEPRESSION [None]
  - PAIN [None]
  - EMOTIONAL DISTRESS [None]
  - NERVOUSNESS [None]
  - FEAR [None]
  - RENAL FAILURE [None]
  - RENAL INJURY [None]
  - ANXIETY [None]
  - MULTI-ORGAN FAILURE [None]
